FAERS Safety Report 11876991 (Version 3)
Quarter: 2016Q1

REPORT INFORMATION
  Report Type: Report from Study
  Country: ES (occurrence: ES)
  Receive Date: 20151229
  Receipt Date: 20160128
  Transmission Date: 20160526
  Serious: Yes (Hospitalization)
  Sender: FDA-Public Use
  Company Number: ES-GILEAD-2015-0189950

PATIENT
  Age: 85 Year
  Sex: Female
  Weight: 57.9 kg

DRUGS (40)
  1. RITUXIMAB [Suspect]
     Active Substance: RITUXIMAB
     Dosage: 650 MG, Q1WK
     Route: 042
     Dates: start: 20150318, end: 20150318
  2. TERTENSIF [Concomitant]
     Indication: HYPERTENSION
     Dosage: UNK
     Route: 048
  3. IBUPROFEN. [Concomitant]
     Active Substance: IBUPROFEN
     Indication: MUSCULOSKELETAL PAIN
     Route: 048
     Dates: start: 20150417
  4. FLUCONAZOLE. [Concomitant]
     Active Substance: FLUCONAZOLE
     Indication: ORAL CANDIDIASIS
     Dosage: UNK
     Route: 042
     Dates: start: 20151028, end: 20151030
  5. VISCOFRESH [Concomitant]
     Indication: CONJUNCTIVITIS
     Route: 047
     Dates: start: 20151115, end: 20151210
  6. DOBUPAL [Concomitant]
     Active Substance: VENLAFAXINE HYDROCHLORIDE
     Indication: DEPRESSION
     Route: 048
  7. FUROSEMIDE. [Concomitant]
     Active Substance: FUROSEMIDE
     Route: 042
     Dates: start: 20151116, end: 20151119
  8. IDELALISIB [Suspect]
     Active Substance: IDELALISIB
     Indication: CHROMOSOMAL DELETION
     Dosage: 150 MG, BID
     Route: 048
     Dates: start: 20150429, end: 20151114
  9. SIMVASTATIN. [Concomitant]
     Active Substance: SIMVASTATIN
     Indication: HYPERCHOLESTEROLAEMIA
     Dosage: UNK
     Route: 048
  10. LEVOFLOXACIN. [Concomitant]
     Active Substance: LEVOFLOXACIN
     Indication: FEBRILE NEUTROPENIA
     Route: 048
     Dates: start: 20151114, end: 20151116
  11. INDAPAMIDE. [Concomitant]
     Active Substance: INDAPAMIDE
     Dosage: UNK
     Route: 048
     Dates: start: 20151117, end: 20151120
  12. INDAPAMIDE. [Concomitant]
     Active Substance: INDAPAMIDE
     Dosage: UNK
     Route: 048
     Dates: start: 20151126, end: 20151202
  13. RITUXIMAB [Suspect]
     Active Substance: RITUXIMAB
     Dosage: UNK
     Route: 042
  14. AMOXICILLIN AND CLAVULANATE POTASSIUM [Concomitant]
     Active Substance: AMOXICILLIN\CLAVULANATE POTASSIUM
     Indication: CANDIDA INFECTION
     Route: 048
     Dates: start: 20151104, end: 20151110
  15. IDELALISIB [Suspect]
     Active Substance: IDELALISIB
     Indication: CHRONIC LYMPHOCYTIC LEUKAEMIA
     Dosage: 150 MG, BID
     Route: 048
     Dates: start: 20150304, end: 20150422
  16. CASPOFUNGINE [Concomitant]
     Indication: ORAL CANDIDIASIS
     Dosage: UNK
     Route: 042
     Dates: start: 20151030, end: 20151110
  17. CASPOFUNGINE [Concomitant]
     Indication: FEBRILE NEUTROPENIA
     Dosage: UNK
     Route: 042
     Dates: start: 20151112, end: 20151114
  18. FLUOCINOLONE [Concomitant]
     Active Substance: FLUOCINOLONE
     Indication: RASH
     Route: 003
     Dates: start: 20151117, end: 20151217
  19. TOCOFEROL [Concomitant]
     Indication: ANAEMIA
     Route: 048
     Dates: start: 20151029, end: 20151110
  20. LORAZEPAM. [Concomitant]
     Active Substance: LORAZEPAM
     Indication: DEPRESSION
     Route: 048
  21. RITUXIMAB [Suspect]
     Active Substance: RITUXIMAB
     Indication: CHRONIC LYMPHOCYTIC LEUKAEMIA
     Dosage: 650 MG, Q1WK
     Route: 042
     Dates: start: 20150304, end: 20150305
  22. RITUXIMAB [Suspect]
     Active Substance: RITUXIMAB
     Dosage: 650 MG, Q1WK
     Route: 042
     Dates: start: 20150429, end: 20150429
  23. RITUXIMAB [Suspect]
     Active Substance: RITUXIMAB
     Indication: CHROMOSOMAL DELETION
     Dosage: 650 MG, Q1WK
     Route: 042
     Dates: start: 20150311, end: 20150311
  24. RITUXIMAB [Suspect]
     Active Substance: RITUXIMAB
     Dosage: 650 MG, Q1WK
     Route: 042
     Dates: start: 20150408, end: 20150408
  25. IRON [Concomitant]
     Active Substance: IRON
     Indication: IRON DEFICIENCY ANAEMIA
     Route: 048
     Dates: start: 20151015
  26. IDELALISIB [Suspect]
     Active Substance: IDELALISIB
     Dosage: 150 MG, BID
     Route: 048
     Dates: start: 20151230
  27. RITUXIMAB [Suspect]
     Active Substance: RITUXIMAB
     Dosage: 650 MG, Q1WK
     Route: 042
     Dates: start: 20150325, end: 20150325
  28. PARACETAMOL [Concomitant]
     Active Substance: ACETAMINOPHEN
     Indication: MUSCULOSKELETAL PAIN
     Route: 048
     Dates: start: 20150417
  29. BROMAZEPAM [Concomitant]
     Active Substance: BROMAZEPAM
     Indication: ANXIETY
     Route: 048
     Dates: start: 201506
  30. PIPERACILLIN/TAZOBACTAM [Concomitant]
     Active Substance: PIPERACILLIN SODIUM\TAZOBACTAM SODIUM
     Indication: FEBRILE NEUTROPENIA
     Dosage: UNK
     Route: 042
     Dates: start: 20151112, end: 20151114
  31. PIPERACILLIN/TAZOBACTAM [Concomitant]
     Active Substance: PIPERACILLIN SODIUM\TAZOBACTAM SODIUM
     Indication: PYREXIA
     Dosage: UNK
     Route: 042
     Dates: start: 20151126, end: 20151201
  32. NYSTATIN. [Concomitant]
     Active Substance: NYSTATIN
     Indication: ENANTHEMA
     Route: 002
     Dates: start: 20151117, end: 20151125
  33. ANIDULAFUNGINE [Concomitant]
     Indication: PYREXIA
     Route: 042
     Dates: start: 20151126, end: 20151202
  34. RITUXIMAB [Suspect]
     Active Substance: RITUXIMAB
     Dosage: 650 MG, Q1WK
     Route: 042
     Dates: start: 20150401, end: 20150401
  35. RITUXIMAB [Suspect]
     Active Substance: RITUXIMAB
     Dosage: 650 MG, Q1WK
     Route: 042
     Dates: start: 20150415, end: 20150415
  36. AGOMELATINE [Concomitant]
     Active Substance: AGOMELATINE
     Indication: DEPRESSION
     Dosage: UNK
     Route: 048
  37. ALMAGATE [Concomitant]
     Active Substance: ALMAGATE
     Indication: GASTROOESOPHAGEAL REFLUX DISEASE
     Route: 048
     Dates: start: 20150914
  38. INDOMETACIN [Concomitant]
     Active Substance: INDOMETHACIN
     Indication: FEBRILE NEUTROPENIA
     Route: 048
     Dates: start: 20151114, end: 20151119
  39. PREDNISONE. [Concomitant]
     Active Substance: PREDNISONE
     Indication: RASH
     Route: 048
     Dates: start: 20151118, end: 20151126
  40. OMEPRAZOLE. [Concomitant]
     Active Substance: OMEPRAZOLE
     Dosage: UNK
     Route: 048

REACTIONS (2)
  - Pyrexia [Recovered/Resolved]
  - Malaise [Recovered/Resolved]

NARRATIVE: CASE EVENT DATE: 20151126
